FAERS Safety Report 25418302 (Version 1)
Quarter: 2025Q2

REPORT INFORMATION
  Report Type: Spontaneous
  Country: VE (occurrence: VE)
  Receive Date: 20250610
  Receipt Date: 20250610
  Transmission Date: 20250717
  Serious: Yes (Other)
  Sender: NOVARTIS
  Company Number: VE-002147023-NVSC2025VE092242

PATIENT
  Sex: Male

DRUGS (1)
  1. GLIVEC [Suspect]
     Active Substance: IMATINIB MESYLATE
     Indication: Gastrointestinal stromal tumour
     Route: 065

REACTIONS (3)
  - Hydronephrosis [Unknown]
  - Malaise [Unknown]
  - COVID-19 [Unknown]
